FAERS Safety Report 6606683-X (Version None)
Quarter: 2010Q1

REPORT INFORMATION
  Report Type: 
  Country: None (occurrence: None)
  Receive Date: 20100226
  Receipt Date: 20100223
  Transmission Date: 20100710
  Serious: Yes (Death)
  Sender: FDA-Public Use
  Company Number: CA-ABBOTT-10P-028-0628121-00

PATIENT
  Sex: Male

DRUGS (4)
  1. KALETRA [Suspect]
     Indication: ANTIRETROVIRAL THERAPY
     Dates: start: 20090314
  2. KALETRA [Suspect]
     Indication: HIV INFECTION
  3. TRUVADA [Concomitant]
     Indication: ANTIRETROVIRAL THERAPY
     Dosage: 200/300 MG 1 TAB
  4. TRUVADA [Concomitant]
     Indication: HIV INFECTION

REACTIONS (1)
  - HIV INFECTION [None]
